FAERS Safety Report 6344198-7 (Version None)
Quarter: 2009Q3

REPORT INFORMATION
  Report Type: 
  Country: None (occurrence: None)
  Receive Date: 20090908
  Receipt Date: 20090825
  Transmission Date: 20100115
  Serious: Yes (Other)
  Sender: FDA-Public Use
  Company Number: US-PFIZER INC-2009260661

PATIENT
  Sex: Male
  Weight: 81.633 kg

DRUGS (3)
  1. GEODON [Suspect]
     Dosage: 40 MG, DAILY
     Route: 048
     Dates: start: 20090801, end: 20090801
  2. ZYPREXA [Concomitant]
     Indication: BIPOLAR DISORDER
     Dosage: UNK
     Dates: end: 20090801
  3. CETIRIZINE [Concomitant]

REACTIONS (5)
  - AGITATION [None]
  - DISTURBANCE IN ATTENTION [None]
  - HEADACHE [None]
  - NAUSEA [None]
  - NERVOUSNESS [None]
